FAERS Safety Report 20410947 (Version 2)
Quarter: 2022Q2

REPORT INFORMATION
  Report Type: Spontaneous
  Country: US (occurrence: US)
  Receive Date: 20220201
  Receipt Date: 20220428
  Transmission Date: 20220721
  Serious: No
  Sender: FDA-Public Use
  Company Number: US-PFIZER INC-202101546540

PATIENT
  Age: 61 Year
  Sex: Female
  Weight: 69.841 kg

DRUGS (1)
  1. IBRANCE [Suspect]
     Active Substance: PALBOCICLIB
     Indication: Breast cancer female
     Dosage: 100 MG, CYCLIC (DAILY X 21 DAYS THEN 7 DAYS OFF)
     Route: 048
     Dates: start: 20211021

REACTIONS (3)
  - Product dose omission in error [Unknown]
  - Oral herpes [Unknown]
  - Madarosis [Not Recovered/Not Resolved]
